FAERS Safety Report 6436510-5 (Version None)
Quarter: 2009Q4

REPORT INFORMATION
  Report Type: 
  Country: None (occurrence: None)
  Receive Date: 20091111
  Receipt Date: 20091104
  Transmission Date: 20100525
  Serious: Yes (Death)
  Sender: FDA-Public Use
  Company Number: JP-WYE-H11606709

PATIENT
  Age: 71 Year
  Sex: Female

DRUGS (1)
  1. ANCARON [Suspect]
     Indication: ATRIAL FIBRILLATION
     Route: 048
     Dates: start: 20070601, end: 20090101

REACTIONS (4)
  - ASPERGILLOSIS [None]
  - CEREBRAL INFARCTION [None]
  - INTERSTITIAL LUNG DISEASE [None]
  - PULMONARY ALVEOLAR HAEMORRHAGE [None]
